FAERS Safety Report 8439167 (Version 2)
Quarter: 2013Q2

REPORT INFORMATION
  Report Type: Spontaneous
  Country: US (occurrence: None)
  Receive Date: 20120104
  Receipt Date: 20120508
  Transmission Date: 20140414
  Serious: Yes (Other)
  Sender: FDA-Public Use
  Company Number: 2011HGS-002755

PATIENT
  Age: 68 Year
  Sex: Female
  Weight: 72.58 kg

DRUGS (11)
  1. BENLYSTA [Suspect]
     Indication: SYSTEMIC LUPUS ERYTHEMATOSUS
     Dosage: 1 IN 28 DAYS
     Route: 041
     Dates: start: 20110629
  2. PREDNISONE [Concomitant]
  3. AMLODIPINE [Concomitant]
  4. HYDROCHLOROTHIAZIDE [Concomitant]
  5. FUROSEMIDE [Concomitant]
  6. SERTRALINE HYDROCHLORIDE [Concomitant]
  7. COUMADIN [Concomitant]
  8. METOPROLOL SUCCINATE [Concomitant]
  9. VITAMIN B12 (CYANOCOBALAMIN) (CYANOCOBALAMIN) [Concomitant]
  10. OSCAL (CALCIUM CARBONATE) (CALCIUM CARBONATE) [Concomitant]
  11. B3 (NICOTINIC ACID) (NICOTINIC ACID) [Concomitant]

REACTIONS (3)
  - EYE PRURITUS [None]
  - OCULAR HYPERAEMIA [None]
  - EYE IRRITATION [None]
